FAERS Safety Report 7028863-4 (Version None)
Quarter: 2010Q4

REPORT INFORMATION
  Report Type: 
  Country: None (occurrence: None)
  Receive Date: 20101005
  Receipt Date: 20100929
  Transmission Date: 20110411
  Serious: Yes (Other)
  Sender: FDA-Public Use
  Company Number: US-B.I. PHARMACEUTICALS,INC./RIDGEFIELD-2010-BP-11005BP

PATIENT
  Sex: Female

DRUGS (13)
  1. ATROVENT HFA [Suspect]
  2. NEURONTIN [Suspect]
  3. LITHIUM CARBONATE [Suspect]
  4. EFFEXOR XR [Suspect]
  5. TRAMADOL HCL [Suspect]
  6. LEVOTHROID [Suspect]
  7. ABILIFY [Suspect]
  8. NEXIUM [Suspect]
  9. BUSPAR [Suspect]
  10. SEROQUEL [Suspect]
  11. MONTELUKAST [Suspect]
  12. FLOVENT [Suspect]
  13. FLEXERIL [Suspect]

REACTIONS (2)
  - DRUG INTERACTION [None]
  - HYPOTHYROIDISM [None]
